FAERS Safety Report 12415627 (Version 2)
Quarter: 2016Q2

REPORT INFORMATION
  Report Type: Report from Study
  Country: US (occurrence: US)
  Receive Date: 20160530
  Receipt Date: 20160603
  Transmission Date: 20160815
  Serious: Yes (Hospitalization, Other)
  Sender: FDA-Public Use
  Company Number: US-GILEAD-2016-0216049

PATIENT
  Age: 48 Year
  Sex: Female

DRUGS (2)
  1. AMBRISENTAN [Suspect]
     Active Substance: AMBRISENTAN
     Indication: PRODUCT USED FOR UNKNOWN INDICATION
     Dosage: 5 MG, QD
     Route: 005
  2. PREDNISONE. [Concomitant]
     Active Substance: PREDNISONE
     Dosage: 20 MG, UNK

REACTIONS (8)
  - Blood potassium increased [Unknown]
  - Sepsis [Unknown]
  - Cardiac failure congestive [Unknown]
  - Monoplegia [Unknown]
  - Abnormal behaviour [Unknown]
  - Mechanical ventilation [Unknown]
  - Fluid overload [Unknown]
  - Hallucination [Unknown]

NARRATIVE: CASE EVENT DATE: 201605
